FAERS Safety Report 16032423 (Version 2)
Quarter: 2019Q2

REPORT INFORMATION
  Report Type: Report from Study
  Country: None (occurrence: US)
  Receive Date: 20190304
  Receipt Date: 20190412
  Transmission Date: 20190711
  Serious: Yes (Other)
  Sender: FDA-Public Use
  Company Number: US-ABBVIE-19K-163-2684248-00

PATIENT
  Age: 44 Year
  Sex: Female
  Weight: 53.12 kg

DRUGS (2)
  1. HUMIRA [Suspect]
     Active Substance: ADALIMUMAB
     Indication: RHEUMATOID ARTHRITIS
     Route: 058
  2. HUMIRA [Suspect]
     Active Substance: ADALIMUMAB
     Dosage: HUMIRA CF PEN
     Route: 058
     Dates: start: 20190224

REACTIONS (5)
  - Injection site bruising [Recovering/Resolving]
  - Injection site papule [Recovering/Resolving]
  - LE cells present [Not Recovered/Not Resolved]
  - Arthralgia [Recovering/Resolving]
  - Injection site erythema [Recovering/Resolving]

NARRATIVE: CASE EVENT DATE: 201902
